FAERS Safety Report 8439165-3 (Version None)
Quarter: 2012Q2

REPORT INFORMATION
  Report Type: 
  Country: None (occurrence: None)
  Receive Date: 20120615
  Receipt Date: 20120607
  Transmission Date: 20120825
  Serious: No
  Sender: FDA-Public Use
  Company Number: PHEH2010US02513

PATIENT
  Sex: Male

DRUGS (22)
  1. CLONAZEPAM [Concomitant]
  2. CARVEDILOL [Concomitant]
     Dosage: 3.125 MG, QD
     Route: 048
  3. FINASTERIDE [Concomitant]
  4. HYDROCODONE BITARTRATE + ACETAMINOPHEN [Concomitant]
  5. VICODIN [Concomitant]
     Dosage: UNK, PRN
  6. LISINOPRIL [Concomitant]
     Dosage: 5 MG IN THE MORNING
  7. PERCOCET [Concomitant]
     Indication: PAIN
     Dosage: UNK,PRN
  8. OXYCODONE AND ACETAMINOPHEN [Concomitant]
     Dosage: UNK, PRN
  9. ASPIRIN [Concomitant]
     Dosage: 81 MG, UNK
  10. ZOLOFT [Concomitant]
     Dosage: 50 MG TAB, AT BEDTIME
  11. POTASSIUM CHLORIDE [Concomitant]
  12. MECLIZINE [Concomitant]
     Dosage: UNK, PRN
  13. UROXATRAL [Concomitant]
     Dosage: 10 MG, 24 HR
  14. TASIGNA [Suspect]
     Indication: CHRONIC MYELOID LEUKAEMIA
     Dosage: 400 MG, BID
     Route: 048
     Dates: start: 20091001
  15. ASPIRIN [Concomitant]
     Dosage: 325 MG, QD
     Route: 048
  16. CARVEDILOL [Concomitant]
     Dosage: 6.25 MG, BID
     Route: 048
  17. XYZAL [Concomitant]
     Dosage: 5 MG, QD
     Route: 048
  18. TASIGNA [Suspect]
     Dosage: 300 MG Q12H
     Route: 048
  19. LISINOPRIL [Concomitant]
     Dosage: 10 MG, QD
     Route: 048
  20. AMBIEN [Concomitant]
     Dosage: 10 MG, PRN
  21. HYDROXYZINE [Concomitant]
  22. DOXAZOSIN MESYLATE [Concomitant]
     Dosage: 4 MG, 24 HR

REACTIONS (7)
  - OEDEMA PERIPHERAL [None]
  - FATIGUE [None]
  - NORMOCHROMIC NORMOCYTIC ANAEMIA [None]
  - PHOTOSENSITIVITY REACTION [None]
  - JOINT SWELLING [None]
  - DYSPNOEA [None]
  - RASH ERYTHEMATOUS [None]
